FAERS Safety Report 7064666-2 (Version None)
Quarter: 2010Q4

REPORT INFORMATION
  Report Type: 
  Country: None (occurrence: None)
  Receive Date: 20101027
  Receipt Date: 20101025
  Transmission Date: 20110411
  Serious: Yes (Death, Hospitalization)
  Sender: FDA-Public Use
  Company Number: ES-SANOFI-AVENTIS-2010SA064780

PATIENT
  Age: 71 Year
  Sex: Male

DRUGS (3)
  1. DOCETAXEL [Suspect]
     Indication: NON-SMALL CELL LUNG CANCER
     Route: 041
     Dates: start: 20090408, end: 20090408
  2. DOCETAXEL [Suspect]
     Route: 041
     Dates: start: 20090429, end: 20090429
  3. ERLOTINIB HYDROCHLORIDE [Suspect]
     Indication: NON-SMALL CELL LUNG CANCER
     Route: 048
     Dates: start: 20090317, end: 20090509

REACTIONS (4)
  - ANAEMIA [None]
  - NEUTROPENIA [None]
  - RESPIRATORY TRACT INFECTION [None]
  - SEPTIC SHOCK [None]
